FAERS Safety Report 6242259-4 (Version None)
Quarter: 2009Q2

REPORT INFORMATION
  Report Type: 
  Country: None (occurrence: None)
  Receive Date: 20090624
  Receipt Date: 20090622
  Transmission Date: 20091009
  Serious: Yes (Death)
  Sender: FDA-Public Use
  Company Number: BR-WYE-H04950208

PATIENT
  Sex: Male

DRUGS (14)
  1. RAPAMUNE [Suspect]
     Indication: PROPHYLAXIS AGAINST TRANSPLANT REJECTION
     Route: 048
     Dates: start: 20030709, end: 20030712
  2. RAPAMUNE [Suspect]
     Route: 048
     Dates: start: 20030713, end: 20030725
  3. RAPAMUNE [Suspect]
     Route: 048
     Dates: start: 20030726, end: 20030827
  4. RAPAMUNE [Suspect]
     Route: 048
     Dates: start: 20030828, end: 20030923
  5. RAPAMUNE [Suspect]
     Route: 048
     Dates: start: 20030924, end: 20031012
  6. RAPAMUNE [Suspect]
     Route: 048
     Dates: start: 20031013
  7. MYCOPHENOLATE MOFETIL [Concomitant]
     Indication: PROPHYLAXIS AGAINST TRANSPLANT REJECTION
     Route: 048
     Dates: start: 20030709
  8. METHYLPREDNISOLONE [Suspect]
     Indication: PROPHYLAXIS AGAINST TRANSPLANT REJECTION
     Route: 042
     Dates: start: 20030710, end: 20030710
  9. METHYLPREDNISOLONE [Suspect]
     Dosage: VARIABLE DOSE
     Route: 042
     Dates: start: 20030711, end: 20030718
  10. SIMVASTATIN [Concomitant]
     Dosage: UNKNOWN
     Route: 065
     Dates: start: 20031015
  11. NIFEDIPINE [Concomitant]
     Dosage: UNKNOWN
     Route: 065
     Dates: start: 20030710
  12. DACLIZUMAB [Concomitant]
     Indication: PROPHYLAXIS AGAINST TRANSPLANT REJECTION
     Dosage: 150 MG X 1 DOSE
     Route: 042
     Dates: start: 20030709, end: 20030709
  13. DACLIZUMAB [Concomitant]
     Route: 042
     Dates: start: 20030725, end: 20030903
  14. PREDNISONE [Suspect]
     Indication: PROPHYLAXIS AGAINST TRANSPLANT REJECTION
     Dosage: VARIABLE DOSE
     Route: 048
     Dates: start: 20030718

REACTIONS (1)
  - CEREBROVASCULAR ACCIDENT [None]
